FAERS Safety Report 24217800 (Version 1)
Quarter: 2024Q3

REPORT INFORMATION
  Report Type: Spontaneous
  Country: US (occurrence: None)
  Receive Date: 20240815
  Receipt Date: 20240815
  Transmission Date: 20241017
  Serious: Yes (Other)
  Sender: Public
  Company Number: None

PATIENT
  Age: 69 Year
  Sex: Female
  Weight: 56.7 kg

DRUGS (5)
  1. PROLIA [Suspect]
     Active Substance: DENOSUMAB
     Indication: Osteoporosis
     Dosage: OTHER QUANTITY : 3 INJECTION(S);?OTHER FREQUENCY : EVERY 6 MONTHS;?
     Route: 030
     Dates: start: 20230124, end: 20240216
  2. FISH OIL [Concomitant]
     Active Substance: FISH OIL
  3. VITAMIN D3 [Concomitant]
     Active Substance: CHOLECALCIFEROL
  4. Vit K2 [Concomitant]
  5. PROBIOTICS NOS [Concomitant]
     Active Substance: PROBIOTICS NOS

REACTIONS (15)
  - Arthralgia [None]
  - Arthralgia [None]
  - Arthralgia [None]
  - Arthralgia [None]
  - Arthralgia [None]
  - Pain in extremity [None]
  - Pain in jaw [None]
  - Arthralgia [None]
  - Myalgia [None]
  - Bone pain [None]
  - Urinary tract infection [None]
  - Dry skin [None]
  - Pruritus [None]
  - Eczema [None]
  - Blood cholesterol increased [None]

NARRATIVE: CASE EVENT DATE: 20240216
